FAERS Safety Report 5216060-4 (Version None)
Quarter: 2007Q1

REPORT INFORMATION
  Report Type: 
  Country: None (occurrence: None)
  Receive Date: 20070123
  Receipt Date: 20070115
  Transmission Date: 20070707
  Serious: Yes (Other)
  Sender: FDA-Public Use
  Company Number: GB-ALLERGAN-0700709US

PATIENT
  Sex: Male

DRUGS (1)
  1. BOTOX 100 UNITS [Suspect]
     Indication: HYPERHIDROSIS
     Dosage: 100 UNITS, SINGLE
     Route: 030

REACTIONS (1)
  - RENAL FAILURE ACUTE [None]
